FAERS Safety Report 9443018 (Version 2)
Quarter: 2013Q3

REPORT INFORMATION
  Report Type: Report from Study
  Country: CA (occurrence: CA)
  Receive Date: 20130806
  Receipt Date: 20130822
  Transmission Date: 20140515
  Serious: No
  Sender: FDA-Public Use
  Company Number: CA-ACTELION-A-CH2013-86656

PATIENT
  Age: 9 Year
  Sex: Male

DRUGS (2)
  1. ZAVESCA [Suspect]
     Indication: NIEMANN-PICK DISEASE
     Dosage: 100 MG, BID
     Route: 048
  2. ZAVESCA [Suspect]
     Dosage: 200 MG, QD
     Route: 048
     Dates: start: 20100609

REACTIONS (1)
  - Cataplexy [Unknown]
